FAERS Safety Report 25697587 (Version 1)
Quarter: 2025Q3

REPORT INFORMATION
  Report Type: Spontaneous
  Country: JP (occurrence: JP)
  Receive Date: 20250818
  Receipt Date: 20250818
  Transmission Date: 20251020
  Serious: Yes (Death, Life-Threatening, Hospitalization)
  Sender: Haleon PLC
  Company Number: JP-002147023-NVSJ2025JP008100

PATIENT
  Age: 73 Year
  Sex: Male
  Weight: 56.3 kg

DRUGS (9)
  1. DICLOFENAC [Suspect]
     Active Substance: DICLOFENAC
     Indication: Back pain
     Route: 065
  2. FLUTICASONE FUROATE [Concomitant]
     Active Substance: FLUTICASONE FUROATE
     Indication: Product used for unknown indication
     Route: 065
  3. ISOSORBIDE [Concomitant]
     Active Substance: ISOSORBIDE
     Indication: Product used for unknown indication
     Route: 065
  4. VILANTEROL TRIFENATATE [Concomitant]
     Active Substance: VILANTEROL TRIFENATATE
     Indication: Product used for unknown indication
     Route: 065
  5. AMLODIPINE [Concomitant]
     Active Substance: AMLODIPINE BESYLATE
     Indication: Product used for unknown indication
     Route: 065
  6. UMECLIDINIUM BROMIDE [Concomitant]
     Active Substance: UMECLIDINIUM BROMIDE
     Indication: Product used for unknown indication
     Route: 065
  7. FLUTICASONE [Concomitant]
     Active Substance: FLUTICASONE
     Indication: Product used for unknown indication
     Route: 065
  8. CELECOXIB [Suspect]
     Active Substance: CELECOXIB
     Indication: Product used for unknown indication
     Route: 065
  9. MONTELUKAST [Concomitant]
     Active Substance: MONTELUKAST
     Indication: Product used for unknown indication
     Route: 065

REACTIONS (21)
  - Depressed level of consciousness [Fatal]
  - Sputum abnormal [Fatal]
  - Protein total increased [Fatal]
  - Plasma cell myeloma [Fatal]
  - Multiple organ dysfunction syndrome [Fatal]
  - Gait disturbance [Unknown]
  - Blood albumin decreased [Unknown]
  - Upper gastrointestinal haemorrhage [Unknown]
  - Faeces discoloured [Unknown]
  - Acute kidney injury [Unknown]
  - Dyspnoea [Fatal]
  - General physical health deterioration [Fatal]
  - Haematemesis [Unknown]
  - Vomiting [Unknown]
  - Anaemia [Unknown]
  - Oxygen saturation decreased [Fatal]
  - Pneumonia [Fatal]
  - Hypercalcaemia [Fatal]
  - Gastroduodenal ulcer [Unknown]
  - Pulmonary alveolar haemorrhage [Fatal]
  - Diffuse alveolar damage [Fatal]
